FAERS Safety Report 17911322 (Version 1)
Quarter: 2020Q2

REPORT INFORMATION
  Report Type: Spontaneous
  Country: FR (occurrence: FR)
  Receive Date: 20200618
  Receipt Date: 20200618
  Transmission Date: 20200714
  Serious: Yes (Other)
  Sender: FDA-Public Use
  Company Number: FR-LUPIN PHARMACEUTICALS INC.-2020-02922

PATIENT
  Age: 10 Year
  Sex: Female

DRUGS (1)
  1. CETIRIZINE [Suspect]
     Active Substance: CETIRIZINE HYDROCHLORIDE
     Indication: PRODUCT USED FOR UNKNOWN INDICATION
     Dosage: 20 MILLIGRAM (2 TABLETS OF 10 MG)
     Route: 065

REACTIONS (5)
  - Confusional state [Unknown]
  - Disorientation [Unknown]
  - Speech disorder [Unknown]
  - Accidental overdose [Unknown]
  - Headache [Unknown]
